FAERS Safety Report 16777239 (Version 2)
Quarter: 2019Q4

REPORT INFORMATION
  Report Type: Spontaneous
  Country: US (occurrence: US)
  Receive Date: 20190905
  Receipt Date: 20191007
  Transmission Date: 20200122
  Serious: No
  Sender: FDA-Public Use
  Company Number: US-ASTRAZENECA-2019SF13652

PATIENT
  Age: 65 Year
  Sex: Female
  Weight: 80.3 kg

DRUGS (3)
  1. SYMBICORT [Suspect]
     Active Substance: BUDESONIDE\FORMOTEROL FUMARATE DIHYDRATE
     Indication: ASTHMA
     Dosage: 160MCG/4.5MCG, 2 PUFFS TWICE DAILY
     Route: 055
     Dates: start: 2018
  2. SYMBICORT [Suspect]
     Active Substance: BUDESONIDE\FORMOTEROL FUMARATE DIHYDRATE
     Indication: ASTHMA
     Dosage: 80MCG/4.5MCG, 2 PUFFS TWICE DAILY
     Route: 055
     Dates: start: 2018
  3. NYASTATIN [Concomitant]
     Indication: CANDIDA INFECTION
     Route: 048
     Dates: start: 2017

REACTIONS (6)
  - Wrong technique in device usage process [Unknown]
  - Incorrect dose administered [Unknown]
  - Product use issue [Unknown]
  - Device issue [Unknown]
  - Oral discomfort [Unknown]
  - Dyspnoea [Unknown]

NARRATIVE: CASE EVENT DATE: 2018
